FAERS Safety Report 4430210-9 (Version None)
Quarter: 2004Q3

REPORT INFORMATION
  Report Type: 
  Country: None (occurrence: None)
  Receive Date: 20040817
  Receipt Date: 20040802
  Transmission Date: 20050211
  Serious: Yes (Hospitalization, Other)
  Sender: FDA-Public Use
  Company Number: 702160

PATIENT
  Age: 58 Year
  Sex: Female
  Weight: 51 kg

DRUGS (5)
  1. AMEVIVE [Suspect]
     Indication: PSORIASIS
     Dosage: 7.5 MG QW IV
     Route: 042
     Dates: start: 20040625, end: 20040601
  2. CELEBREX [Concomitant]
  3. FOLIC ACID [Concomitant]
  4. DIAMICRON [Concomitant]
  5. GLUCOPHAGE [Concomitant]

REACTIONS (5)
  - DRUG ERUPTION [None]
  - DRUG HYPERSENSITIVITY [None]
  - INFECTION [None]
  - RASH PUSTULAR [None]
  - THROMBOCYTHAEMIA [None]
